FAERS Safety Report 5801341-3 (Version None)
Quarter: 2008Q2

REPORT INFORMATION
  Report Type: 
  Country: None (occurrence: None)
  Receive Date: 20080626
  Receipt Date: 20080303
  Transmission Date: 20081010
  Serious: Yes (Hospitalization)
  Sender: FDA-Public Use
  Company Number: 550927

PATIENT
  Age: 60 Year
  Sex: Female
  Weight: 92.5 kg

DRUGS (4)
  1. XELODA [Suspect]
     Indication: BREAST CANCER METASTATIC
     Dosage: 500 MG 8 PER DAY ORAL
     Route: 048
     Dates: start: 20080206, end: 20080229
  2. VITAMIN (VITAMIN NOS) [Concomitant]
  3. CLARINEX (*DESLORATADINE/*LORATADINE/*PSEUDOEPHEDRINE HYDROCHLORIDE) [Concomitant]
  4. ZOMETA [Concomitant]

REACTIONS (16)
  - DECREASED APPETITE [None]
  - DIZZINESS [None]
  - DYSPHONIA [None]
  - ERUCTATION [None]
  - EYE DISCHARGE [None]
  - FATIGUE [None]
  - FEELING ABNORMAL [None]
  - HYPOTENSION [None]
  - MUSCULOSKELETAL PAIN [None]
  - NAUSEA [None]
  - NECK PAIN [None]
  - PAIN IN JAW [None]
  - PERICARDIAL EFFUSION [None]
  - PHARYNGOLARYNGEAL PAIN [None]
  - PULMONARY EMBOLISM [None]
  - THROMBOSIS [None]
